FAERS Safety Report 6243904-X (Version None)
Quarter: 2009Q2

REPORT INFORMATION
  Report Type: 
  Country: None (occurrence: None)
  Receive Date: 20090623
  Receipt Date: 20090609
  Transmission Date: 20091009
  Serious: Yes (Hospitalization, Other)
  Sender: FDA-Public Use
  Company Number: 235959K09USA

PATIENT
  Age: 48 Year
  Sex: Female

DRUGS (8)
  1. REBIF [Suspect]
     Indication: MULTIPLE SCLEROSIS
     Dosage: 44 MCG, 3 IN 1 WEEKS, SUBCUTANEOUS
     Route: 058
     Dates: start: 20030805, end: 20090602
  2. BACLOFEN [Concomitant]
  3. NEURONTIN [Concomitant]
  4. BENICAR [Concomitant]
  5. CYMBALTA [Concomitant]
  6. OXYBUTYNIN CHLORIDE(OXYBUTYNIN HYDROCHLORIDE) [Concomitant]
  7. NEXIUM [Concomitant]
  8. SINGULAIR [Concomitant]

REACTIONS (9)
  - ARTHRITIS [None]
  - BRONCHITIS CHRONIC [None]
  - FUNGAL INFECTION [None]
  - INJECTION SITE INFECTION [None]
  - LUNG INFECTION [None]
  - MYALGIA [None]
  - PNEUMONIA [None]
  - RAYNAUD'S PHENOMENON [None]
  - WOUND INFECTION STAPHYLOCOCCAL [None]
